FAERS Safety Report 10009788 (Version 1)
Quarter: 2014Q1

REPORT INFORMATION
  Report Type: Spontaneous
  Country: US (occurrence: US)
  Receive Date: 20140312
  Receipt Date: 20140312
  Transmission Date: 20141002
  Serious: No
  Sender: FDA-Public Use
  Company Number: US-INCYTE CORPORATION-2012IN002616

PATIENT
  Sex: 0

DRUGS (12)
  1. JAKAFI [Suspect]
     Indication: MYELOFIBROSIS
     Dosage: 20 MG, BID
  2. PREDNISONE [Concomitant]
  3. ALLOPURINOL [Concomitant]
  4. NORVASC [Concomitant]
  5. ASPIRIN [Concomitant]
  6. AVODART [Concomitant]
  7. SYMBICORT [Concomitant]
  8. HYDROCODONE [Concomitant]
  9. HYDREA [Concomitant]
  10. LOSARTAN [Concomitant]
  11. METOPROLOL [Concomitant]
  12. FLOMAX [Concomitant]

REACTIONS (2)
  - Arthralgia [Unknown]
  - Cardiovascular disorder [Unknown]
